FAERS Safety Report 5734937-8 (Version None)
Quarter: 2008Q2

REPORT INFORMATION
  Report Type: 
  Country: None (occurrence: None)
  Receive Date: 20080509
  Receipt Date: 20080501
  Transmission Date: 20081010
  Serious: Yes (Other)
  Sender: FDA-Public Use
  Company Number: 08H-163-0314234-00

PATIENT
  Age: 30 Year

DRUGS (1)
  1. PANHEPRIN [Suspect]
     Indication: CENTRAL VENOUS CATHETERISATION
     Dosage: 100 UNIT, PERIPHERALLY INSERTED CENTRAL CATHETER
     Dates: start: 20080430

REACTIONS (4)
  - CYANOSIS [None]
  - DYSPNOEA [None]
  - GRAND MAL CONVULSION [None]
  - UNRESPONSIVE TO STIMULI [None]
